FAERS Safety Report 16387171 (Version 2)
Quarter: 2019Q3

REPORT INFORMATION
  Report Type: Spontaneous
  Country: US (occurrence: US)
  Receive Date: 20190604
  Receipt Date: 20190704
  Transmission Date: 20191004
  Serious: Yes (Other)
  Sender: FDA-Public Use
  Company Number: US-ASTRAZENECA-2019SE80486

PATIENT
  Age: 78 Year
  Sex: Female
  Weight: 86.2 kg

DRUGS (25)
  1. ACYCLOVIR. [Concomitant]
     Active Substance: ACYCLOVIR
  2. CEPHALEXIN. [Concomitant]
     Active Substance: CEPHALEXIN
  3. METFORMIN [Concomitant]
     Active Substance: METFORMIN HYDROCHLORIDE
  4. ONGLYZA [Suspect]
     Active Substance: SAXAGLIPTIN HYDROCHLORIDE
     Indication: INSULIN-REQUIRING TYPE 2 DIABETES MELLITUS
     Route: 048
     Dates: start: 201005
  5. ONGLYZA [Suspect]
     Active Substance: SAXAGLIPTIN HYDROCHLORIDE
     Indication: INSULIN-REQUIRING TYPE 2 DIABETES MELLITUS
     Route: 048
     Dates: start: 20100527, end: 20180526
  6. PREDNISONE. [Concomitant]
     Active Substance: PREDNISONE
  7. NYSTATIN. [Concomitant]
     Active Substance: NYSTATIN
  8. SPIRONOLACTONE. [Concomitant]
     Active Substance: SPIRONOLACTONE
  9. LISINOPRIL. [Concomitant]
     Active Substance: LISINOPRIL
  10. CARVEDILOL. [Concomitant]
     Active Substance: CARVEDILOL
  11. TORSEMIDE. [Concomitant]
     Active Substance: TORSEMIDE
  12. DIGOXIN. [Concomitant]
     Active Substance: DIGOXIN
  13. LOSARTAN. [Concomitant]
     Active Substance: LOSARTAN
  14. GLYBURIDE. [Concomitant]
     Active Substance: GLYBURIDE
  15. METRONIDAZOLE. [Concomitant]
     Active Substance: METRONIDAZOLE
  16. NEOMYCIN. [Concomitant]
     Active Substance: NEOMYCIN
  17. ASPIRIN. [Concomitant]
     Active Substance: ASPIRIN
  18. ATORVASTATIN [Concomitant]
     Active Substance: ATORVASTATIN
  19. TRIAMCINOLON [Concomitant]
  20. GLIMEPIRIDE. [Concomitant]
     Active Substance: GLIMEPIRIDE
  21. CLOPIDOGREL [Concomitant]
     Active Substance: CLOPIDOGREL BISULFATE
  22. COLCHICINE. [Concomitant]
     Active Substance: COLCHICINE
  23. TRAMADOL. [Concomitant]
     Active Substance: TRAMADOL
  24. MOVIPREP [Concomitant]
     Active Substance: ASCORBIC ACID\POLYETHYLENE GLYCOL 3350\POTASSIUM CHLORIDE\SODIUM ASCORBATE\SODIUM CHLORIDE\SODIUM SULFATE
  25. FLONASE [Concomitant]
     Active Substance: FLUTICASONE PROPIONATE

REACTIONS (5)
  - Cardiac failure [Unknown]
  - Atrial fibrillation [Unknown]
  - Ischaemic cardiomyopathy [Unknown]
  - Cardiac failure congestive [Unknown]
  - Hypertensive heart disease [Unknown]

NARRATIVE: CASE EVENT DATE: 201702
